FAERS Safety Report 6128236-2 (Version None)
Quarter: 2009Q1

REPORT INFORMATION
  Report Type: 
  Country: None (occurrence: None)
  Receive Date: 20090319
  Receipt Date: 20090305
  Transmission Date: 20090719
  Serious: Yes (Hospitalization)
  Sender: FDA-Public Use
  Company Number: 02100-JPN--05-0482

PATIENT
  Age: 77 Year
  Sex: Female

DRUGS (7)
  1. PLETAL [Suspect]
     Indication: ARTERIAL STENOSIS
     Dosage: 100 MG,  BID ORAL
     Route: 048
     Dates: start: 20050902, end: 20050909
  2. ASPIRIN [Concomitant]
  3. METFORMIN HCL [Concomitant]
  4. CIPROFLOXACIN [Concomitant]
  5. FOLIC ACID [Concomitant]
  6. VITAMEDIN (BENFOTIAMINE/B6/B12 CONBINED DRUG) [Concomitant]
  7. INSULIN (INSULIN) [Concomitant]

REACTIONS (5)
  - GASTROINTESTINAL ANGIODYSPLASIA [None]
  - HAEMATOCHEZIA [None]
  - LOWER GASTROINTESTINAL HAEMORRHAGE [None]
  - NAUSEA [None]
  - VOMITING [None]
